FAERS Safety Report 8465900-4 (Version None)
Quarter: 2012Q2

REPORT INFORMATION
  Report Type: 
  Country: None (occurrence: None)
  Receive Date: 20120626
  Receipt Date: 20120621
  Transmission Date: 20120825
  Serious: Yes (Other)
  Sender: FDA-Public Use
  Company Number: US-PFIZER INC-2012149880

PATIENT
  Age: 52 Year
  Sex: Female

DRUGS (7)
  1. TRICOR [Suspect]
     Indication: BLOOD CHOLESTEROL INCREASED
     Dosage: DAILY
     Dates: end: 20110701
  2. LOVAZA [Suspect]
     Indication: BLOOD TRIGLYCERIDES INCREASED
  3. PREMARIN [Suspect]
     Indication: MENOPAUSE
     Dosage: 0.625 MG/G, DAILY 3 WEEKS ON 1 WEEK OFF
     Route: 067
     Dates: start: 20120201
  4. PREMARIN [Suspect]
     Indication: OESTRADIOL DECREASED
  5. LOVAZA [Suspect]
     Indication: BLOOD CHOLESTEROL INCREASED
     Dosage: TWO TABLETS OF UNKNOWN DOSE TWO TIMES A DAY
     Route: 048
  6. PRAVASTATIN [Suspect]
     Indication: BLOOD CHOLESTEROL INCREASED
     Dosage: DAILY
     Route: 048
     Dates: start: 20110701
  7. ESTROGENS CONJUGATED [Concomitant]
     Indication: BLOOD OESTROGEN DECREASED
     Dosage: DURING THE OFF THERAPY OF CONJUGATED ESTROGENS CREAM
     Route: 048
     Dates: start: 20120101

REACTIONS (10)
  - CHROMATURIA [None]
  - BACK PAIN [None]
  - ARTHRALGIA [None]
  - DYSURIA [None]
  - PRODUCT PHYSICAL ISSUE [None]
  - ACTIVITIES OF DAILY LIVING IMPAIRED [None]
  - LIVER DISORDER [None]
  - PRODUCT ADHESION ISSUE [None]
  - HEPATIC ENZYME INCREASED [None]
  - PAIN IN EXTREMITY [None]
